FAERS Safety Report 9519686 (Version 1)
Quarter: 2013Q1

REPORT INFORMATION
  Report Type: Spontaneous
  Country: US (occurrence: None)
  Receive Date: 20130305
  Receipt Date: 20130305
  Transmission Date: 20140127
  Serious: Yes (Other)
  Sender: FDA-Public Use
  Company Number: 163-21880-12080705

PATIENT
  Age: 76 Year
  Sex: Female
  Weight: 40.82 kg

DRUGS (4)
  1. REVLIMID (LENALIDOMIDE) (CAPSULES) [Suspect]
     Indication: MYELODYSPLASTIC SYNDROME
     Dosage: 10 MG, 21 IN 21 D, PO
     Route: 048
     Dates: start: 20120802
  2. PLAVIX (CLOPIDOGREL SULFATE) (UNKNOWN) [Concomitant]
  3. ASPIRIN (ACETYLSALICYLIC ACID) (UNKNOWN) (ACETYLSALICYLIC ACID) [Concomitant]
  4. CHOLESTEROL MEDICINE (OTHER CHOLESTEROL AND TRIGLYCERIDE REDUCERS) (UNKNOWN) [Concomitant]

REACTIONS (4)
  - Gait disturbance [None]
  - Pruritus [None]
  - Dyspnoea [None]
  - Chest discomfort [None]
